FAERS Safety Report 22147187 (Version 1)
Quarter: 2023Q1

REPORT INFORMATION
  Report Type: Spontaneous
  Country: US (occurrence: None)
  Receive Date: 20230327
  Receipt Date: 20230327
  Transmission Date: 20230417
  Serious: Yes (Other)
  Sender: FDA-Public Use
  Company Number: None

PATIENT
  Age: 79 Year
  Sex: Female
  Weight: 81.65 kg

DRUGS (12)
  1. METHENAMINE HIPPURATE [Suspect]
     Active Substance: METHENAMINE HIPPURATE
     Dosage: QUANTITY: 2 PILLS
     Route: 048
     Dates: end: 20230202
  2. NITROFURANTOIN MONOHYDRATE [Suspect]
     Active Substance: NITROFURANTOIN MONOHYDRATE
     Dosage: FREQUENCY : TWICE A DAY;?
     Route: 048
  3. PRAVASTATIN [Concomitant]
     Active Substance: PRAVASTATIN
  4. VITAMIN D3 [Concomitant]
     Active Substance: CHOLECALCIFEROL
  5. ZINC [Concomitant]
     Active Substance: ZINC
  6. MAGNESIUM [Concomitant]
     Active Substance: MAGNESIUM
  7. VITAMIN B COMPLEX [Concomitant]
     Active Substance: CYANOCOBALAMIN\DEXPANTHENOL\NIACINAMIDE\PYRIDOXINE HYDROCHLORIDE\RIBOFLAVIN 5^-PHOSPHATE SODIUM\THIA
  8. CALCIUM [Concomitant]
     Active Substance: CALCIUM
  9. VITAL PROTEINS COLLAGEN [Concomitant]
  10. PEPTIDES [Concomitant]
  11. SAIGON [Concomitant]
  12. CINNAMON [Concomitant]
     Active Substance: CINNAMON

REACTIONS (6)
  - Pyrexia [None]
  - Diarrhoea [None]
  - Dizziness [None]
  - Rash erythematous [None]
  - Product communication issue [None]
  - Fear [None]

NARRATIVE: CASE EVENT DATE: 20230209
